FAERS Safety Report 23064097 (Version 1)
Quarter: 2023Q4

REPORT INFORMATION
  Report Type: Spontaneous
  Country: FR (occurrence: FR)
  Receive Date: 20231013
  Receipt Date: 20231013
  Transmission Date: 20240110
  Serious: Yes (Death)
  Sender: FDA-Public Use
  Company Number: None

PATIENT
  Age: 77 Year
  Sex: Female
  Weight: 72 kg

DRUGS (4)
  1. CELECOXIB [Suspect]
     Active Substance: CELECOXIB
     Indication: Osteoarthritis
     Dosage: 400 MILLIGRAM, QD (2 INTAK3ES OF 200 MG)
     Route: 048
     Dates: start: 20230915, end: 20230927
  2. ACETAMINOPHEN [Concomitant]
     Active Substance: ACETAMINOPHEN
     Indication: Osteoarthritis
     Dosage: 3 DOSAGE FORM, QD
     Route: 048
     Dates: start: 20230915, end: 20230927
  3. INIPOMP [Concomitant]
     Active Substance: PANTOPRAZOLE SODIUM
     Indication: Abdominal pain upper
     Dosage: 1 DOSAGE FORM, QD
     Route: 048
     Dates: start: 20230922, end: 20230927
  4. CODEINE [Concomitant]
     Active Substance: CODEINE
     Indication: Osteoarthritis
     Dosage: 3 DOSAGE FORM, QD
     Route: 048
     Dates: start: 20230915, end: 20230927

REACTIONS (1)
  - Myocardial infarction [Fatal]

NARRATIVE: CASE EVENT DATE: 20230927
